FAERS Safety Report 24201534 (Version 1)
Quarter: 2024Q3

REPORT INFORMATION
  Report Type: Spontaneous
  Country: US (occurrence: None)
  Receive Date: 20240811
  Receipt Date: 20240811
  Transmission Date: 20241016
  Serious: Yes (Other)
  Sender: Public
  Company Number: None

PATIENT
  Age: 4 Year
  Sex: Male
  Weight: 20.25 kg

DRUGS (30)
  1. SULFAMETHOXAZOLE [Suspect]
     Active Substance: SULFAMETHOXAZOLE
     Indication: Staphylococcal infection
     Dosage: TWICE A DAY ORAL
     Route: 048
     Dates: start: 20240715, end: 20240722
  2. UNSPECIFIED INGREDIENT [Suspect]
     Active Substance: UNSPECIFIED INGREDIENT
     Indication: Product used for unknown indication
     Dosage: DAILY ORAL
     Route: 048
  3. PENTASA [Concomitant]
     Active Substance: MESALAMINE
  4. OMEPRAZOLE [Concomitant]
     Active Substance: OMEPRAZOLE
  5. SENNA [Concomitant]
     Active Substance: SENNA LEAF\SENNOSIDES\SENNOSIDES A AND B
  6. FLOVENT [Concomitant]
     Active Substance: FLUTICASONE PROPIONATE
  7. FLONASE [Concomitant]
     Active Substance: FLUTICASONE PROPIONATE
  8. SYMBICORT [Concomitant]
     Active Substance: BUDESONIDE\FORMOTEROL FUMARATE DIHYDRATE
  9. IRON [Concomitant]
     Active Substance: IRON
  10. TRIAMCINOLONE [Concomitant]
     Active Substance: TRIAMCINOLONE
  11. MUPIROCIN [Concomitant]
     Active Substance: MUPIROCIN
  12. HYDROCORTISONE [Concomitant]
     Active Substance: HYDROCORTISONE\HYDROCORTISONE ACETATE
  13. NYSTOP [Concomitant]
     Active Substance: NYSTATIN
  14. kate farms pediatric peptide 1.5 vanilla [Concomitant]
  15. ACTIVATED CHARCOAL [Concomitant]
     Active Substance: ACTIVATED CHARCOAL
  16. CLONIDINE [Concomitant]
     Active Substance: CLONIDINE
  17. MIRALAX [Concomitant]
     Active Substance: POLYETHYLENE GLYCOL 3350
  18. DIETARY SUPPLEMENT [Concomitant]
     Active Substance: DIETARY SUPPLEMENT
  19. HERBALS\WITHANIA SOMNIFERA ROOT [Concomitant]
     Active Substance: HERBALS\WITHANIA SOMNIFERA ROOT
  20. DMAE [Concomitant]
  21. PHSOPHATIDYLSERINE [Concomitant]
  22. INOSITOL [Concomitant]
     Active Substance: INOSITOL
  23. MAGNESIUM [Concomitant]
     Active Substance: MAGNESIUM
  24. 5-HTP [Concomitant]
  25. LEVOMEFOLATE CALCIUM [Concomitant]
     Active Substance: LEVOMEFOLATE CALCIUM
  26. FLINESTONES MULTIVITAMIN+EXTRA IRON [Concomitant]
  27. MELATONIN [Concomitant]
     Active Substance: MELATONIN
  28. NIGHT TIME GRIPE WATER [Concomitant]
  29. KDIS CONSTIPATION EASE [Concomitant]
  30. PROBIOTICS NOS [Concomitant]
     Active Substance: PROBIOTICS NOS

REACTIONS (4)
  - Reaction to colouring [None]
  - Aggression [None]
  - Homicidal ideation [None]
  - Psychomotor hyperactivity [None]

NARRATIVE: CASE EVENT DATE: 20240730
